FAERS Safety Report 6681135-X (Version None)
Quarter: 2010Q2

REPORT INFORMATION
  Report Type: 
  Country: None (occurrence: None)
  Receive Date: 20100414
  Receipt Date: 20100325
  Transmission Date: 20101027
  Serious: Yes (Hospitalization, Other)
  Sender: FDA-Public Use
  Company Number: US-ROCHE-696272

PATIENT
  Sex: Female
  Weight: 98.6 kg

DRUGS (27)
  1. AVASTIN [Suspect]
     Route: 065
     Dates: start: 20090821
  2. CYCLOPLATIN [Suspect]
     Route: 065
     Dates: start: 20090821
  3. AREDIA [Suspect]
     Dosage: FREQUENCY: EVERY CYCLE
     Route: 065
     Dates: start: 20090821
  4. ALIMTA [Suspect]
     Dosage: FREQUENCY: EVERY CYCLE
     Route: 065
     Dates: start: 20100202
  5. TAXOL [Suspect]
     Dosage: FREQUENCY: EVERY CYCLE
     Route: 065
     Dates: start: 20090821
  6. PLAVIX [Suspect]
     Indication: STENT PLACEMENT
     Route: 048
     Dates: start: 20060501, end: 20100210
  7. PLAVIX [Suspect]
     Route: 048
     Dates: start: 20100216
  8. THEO-DUR [Concomitant]
  9. SYNTHROID [Concomitant]
  10. POTASSIUM [Concomitant]
  11. CHLORIDE NOS [Concomitant]
  12. GLUCOPHAGE [Concomitant]
     Dates: start: 20020101
  13. IPRATROPIUM BROMIDE [Concomitant]
  14. HYDROCHLOROTHIAZIDE [Concomitant]
     Dates: start: 20020101
  15. COZAAR [Concomitant]
     Dates: end: 20100202
  16. ZANTAC [Concomitant]
  17. COMPAZINE [Concomitant]
  18. FOLIC ACID [Concomitant]
  19. VITAMIN D3 [Concomitant]
  20. VITAMIN B COMPLEX CAP [Concomitant]
  21. MULTIVITAMIN NOS [Concomitant]
  22. MAGNESIUM [Concomitant]
  23. OXYGEN [Concomitant]
  24. ECOTRIN [Concomitant]
  25. DIPHENHYDRAMINE HYDROCHLORIDE CAPSULES [Concomitant]
  26. CORTICOSTEROIDS [Concomitant]
  27. ANTIEMETIC [Concomitant]
     Dosage: DRUG REPORTED: ANTIEMETICS AND ANTINAUSEANTS

REACTIONS (5)
  - COMPRESSION FRACTURE [None]
  - DEHYDRATION [None]
  - EPISTAXIS [None]
  - FALL [None]
  - HYPOTENSION [None]
